FAERS Safety Report 10994858 (Version 3)
Quarter: 2015Q2

REPORT INFORMATION
  Report Type: Report from Study
  Country: BR (occurrence: BR)
  Receive Date: 20150407
  Receipt Date: 20150519
  Transmission Date: 20150821
  Serious: Yes (Other)
  Sender: FDA-Public Use
  Company Number: PHHY2015BR037243

PATIENT
  Age: 64 Year
  Sex: Female
  Weight: 70 kg

DRUGS (3)
  1. GILENYA [Suspect]
     Active Substance: FINGOLIMOD HYDROCHLORIDE
     Indication: MULTIPLE SCLEROSIS
     Dosage: 0.5 MG, QD
     Route: 048
     Dates: start: 20150116
  2. MANTIDAN [Concomitant]
     Active Substance: AMANTADINE HYDROCHLORIDE
     Indication: GAIT DISTURBANCE
     Dosage: 2 DF, QD
     Route: 048
     Dates: start: 201411
  3. FONT D [Concomitant]
     Indication: VITAMIN SUPPLEMENTATION
     Dosage: 10 DRP, QD
     Route: 048
     Dates: start: 201501

REACTIONS (4)
  - Spinal cord disorder [Unknown]
  - Gait disturbance [None]
  - Vision blurred [Not Recovered/Not Resolved]
  - Concomitant disease aggravated [Unknown]

NARRATIVE: CASE EVENT DATE: 201503
